FAERS Safety Report 7930626-X (Version None)
Quarter: 2011Q4

REPORT INFORMATION
  Report Type: 
  Country: None (occurrence: None)
  Receive Date: 20111121
  Receipt Date: 20111110
  Transmission Date: 20120403
  Serious: Yes (Other)
  Sender: FDA-Public Use
  Company Number: GB-TEVA-308609ISR

PATIENT
  Age: 74 Year
  Sex: Male

DRUGS (6)
  1. LANSOPRAZOLE [Concomitant]
  2. HYDROMOL CREAM [Interacting]
  3. SIMVASTATIN [Concomitant]
  4. LOSARTAN [Concomitant]
  5. BISOPROLOL FUMARATE [Concomitant]
  6. WARFARIN SODIUM [Suspect]

REACTIONS (2)
  - DRUG INTERACTION [None]
  - INTERNATIONAL NORMALISED RATIO INCREASED [None]
